FAERS Safety Report 9819452 (Version 1)
Quarter: 2014Q1

REPORT INFORMATION
  Report Type: Spontaneous
  Country: US (occurrence: US)
  Receive Date: 20140115
  Receipt Date: 20140115
  Transmission Date: 20141002
  Serious: No
  Sender: FDA-Public Use
  Company Number: US-ENDO PHARMACEUTICALS INC.-HCDA20130136

PATIENT
  Sex: Male

DRUGS (5)
  1. HYDROCODONE BITARTRATE + ACETAMINOPHEN [Suspect]
     Indication: PAIN
     Dosage: 15MG/975MG
     Route: 048
  2. OXYCODONE HCL 5MG [Suspect]
     Indication: PAIN
     Route: 048
  3. SERTRALINE [Suspect]
     Indication: PRODUCT USED FOR UNKNOWN INDICATION
     Dosage: UNK
     Route: 065
  4. FENTANYL [Suspect]
     Indication: PAIN
     Dosage: UNK
     Route: 061
  5. METHADONE [Suspect]
     Indication: PAIN
     Dosage: 5MG
     Route: 065

REACTIONS (1)
  - Blood testosterone decreased [Recovered/Resolved]
